FAERS Safety Report 10402757 (Version 1)
Quarter: 2014Q3

REPORT INFORMATION
  Report Type: Spontaneous
  Country: NL (occurrence: NL)
  Receive Date: 20140822
  Receipt Date: 20140822
  Transmission Date: 20150326
  Serious: Yes (Hospitalization, Congenital Anomaly)
  Sender: FDA-Public Use
  Company Number: NL-ASTRAZENECA-2014SE59990

PATIENT
  Age: 0 Day
  Sex: Male
  Weight: 2 kg

DRUGS (5)
  1. FOLIC ACID. [Concomitant]
     Active Substance: FOLIC ACID
  2. OMEPRAZOL [Suspect]
     Active Substance: OMEPRAZOLE
     Indication: HYPEREMESIS GRAVIDARUM
     Route: 064
     Dates: start: 20140120
  3. EMESAFENE [Suspect]
     Active Substance: MECLIZINE\PYRIDOXINE
     Indication: HYPEREMESIS GRAVIDARUM
     Route: 064
     Dates: start: 20140114
  4. PRIMPERAN [Suspect]
     Active Substance: METOCLOPRAMIDE HYDROCHLORIDE
     Indication: HYPEREMESIS GRAVIDARUM
     Route: 064
     Dates: start: 20140124
  5. PRIMPERAN [Suspect]
     Active Substance: METOCLOPRAMIDE HYDROCHLORIDE
     Indication: HYPEREMESIS GRAVIDARUM
     Dosage: 5MG/ML AMPUL 2ML, THREE TIMES A DAY
     Route: 064
     Dates: start: 20140121

REACTIONS (3)
  - Maternal drugs affecting foetus [None]
  - Premature baby [Unknown]
  - Congenital diaphragmatic hernia [Recovering/Resolving]

NARRATIVE: CASE EVENT DATE: 20140705
